FAERS Safety Report 5203855-6 (Version None)
Quarter: 2007Q1

REPORT INFORMATION
  Report Type: 
  Country: None (occurrence: None)
  Receive Date: 20070105
  Receipt Date: 20070105
  Transmission Date: 20070707
  Serious: Yes (Life-Threatening, Hospitalization)
  Sender: FDA-Public Use
  Company Number: None

PATIENT
  Age: 34 Year
  Sex: Male
  Weight: 79.3 kg

DRUGS (1)
  1. ACETAMINOPHEN [Suspect]
     Indication: MIGRAINE
     Dosage: 5-6 TABLETS PO QD
     Route: 048
     Dates: start: 20060423, end: 20060430

REACTIONS (7)
  - ALANINE AMINOTRANSFERASE INCREASED [None]
  - ASPARTATE AMINOTRANSFERASE INCREASED [None]
  - BLOOD CREATININE INCREASED [None]
  - FATIGUE [None]
  - HAEMODIALYSIS [None]
  - NAUSEA [None]
  - VOMITING [None]
